FAERS Safety Report 11268272 (Version 1)
Quarter: 2015Q3

REPORT INFORMATION
  Report Type: Spontaneous
  Country: GB (occurrence: GB)
  Receive Date: 20150714
  Receipt Date: 20150714
  Transmission Date: 20151125
  Serious: Yes (Disabling)
  Sender: FDA-Public Use
  Company Number: GB-DRREDDYS-GER/UKI/15/0049278

PATIENT
  Age: 50 Year
  Sex: Male
  Weight: 76 kg

DRUGS (7)
  1. DIAZEPAM. [Concomitant]
     Active Substance: DIAZEPAM
     Indication: PRODUCT USED FOR UNKNOWN INDICATION
     Dates: start: 20150120
  2. MORPHINE SULFATE. [Concomitant]
     Active Substance: MORPHINE SULFATE
     Indication: PAIN
     Dates: start: 20150120
  3. TAPENTADOL [Concomitant]
     Active Substance: TAPENTADOL
     Indication: PRODUCT USED FOR UNKNOWN INDICATION
     Dosage: TAKE ONE EVERY 4-6 HOURS
     Dates: start: 20150120
  4. TEMAZEPAM. [Concomitant]
     Active Substance: TEMAZEPAM
     Indication: PRODUCT USED FOR UNKNOWN INDICATION
     Dosage: ONE OR TWO EVERY NIGHT AS REQUIRED
     Dates: start: 20150120
  5. DULOXETINE. [Suspect]
     Active Substance: DULOXETINE
     Indication: PRODUCT USED FOR UNKNOWN INDICATION
     Dates: start: 20150526
  6. DERMOVATE [Concomitant]
     Active Substance: CLOBETASOL
     Indication: PRODUCT USED FOR UNKNOWN INDICATION
     Dosage: APPLY GENEROUSLY UNDER DRESSING
     Dates: start: 20150623
  7. PREGABALIN. [Concomitant]
     Active Substance: PREGABALIN
     Indication: PAIN
     Dates: start: 20150120

REACTIONS (1)
  - Blister [Recovering/Resolving]

NARRATIVE: CASE EVENT DATE: 20150626
